FAERS Safety Report 13417979 (Version 1)
Quarter: 2017Q2

REPORT INFORMATION
  Report Type: Spontaneous
  Country: FI (occurrence: FI)
  Receive Date: 20170407
  Receipt Date: 20170407
  Transmission Date: 20170830
  Serious: Yes (Hospitalization)
  Sender: FDA-Public Use
  Company Number: FI-TAKEDA-2017TUS007055

PATIENT
  Age: 48 Year
  Sex: Male

DRUGS (1)
  1. ENTYVIO [Suspect]
     Active Substance: VEDOLIZUMAB
     Indication: CROHN^S DISEASE
     Dosage: 300 MG, UNK
     Route: 042

REACTIONS (8)
  - Muscular weakness [Recovering/Resolving]
  - Malaise [Recovering/Resolving]
  - Dysgeusia [Recovered/Resolved]
  - Erythema [Recovered/Resolved]
  - Dizziness [Recovering/Resolving]
  - Nasal congestion [Recovered/Resolved]
  - Consciousness fluctuating [Recovering/Resolving]
  - Asthenia [Recovering/Resolving]

NARRATIVE: CASE EVENT DATE: 20170322
